FAERS Safety Report 13285748 (Version 1)
Quarter: 2017Q1

REPORT INFORMATION
  Report Type: Report from Study
  Country: US (occurrence: US)
  Receive Date: 20170302
  Receipt Date: 20170302
  Transmission Date: 20170428
  Serious: Yes (Other)
  Sender: FDA-Public Use
  Company Number: US-ACADIA PHARMACEUTICALS INC.-ACA-2017-002201

PATIENT
  Age: 65 Year
  Sex: Female
  Weight: 74.83 kg

DRUGS (5)
  1. RYTARY [Concomitant]
     Active Substance: CARBIDOPA\LEVODOPA
     Indication: PARKINSON^S DISEASE
     Dosage: UNK
     Route: 065
  2. NUPLAZID [Suspect]
     Active Substance: PIMAVANSERIN TARTRATE
     Indication: SEIZURE
  3. NUPLAZID [Suspect]
     Active Substance: PIMAVANSERIN TARTRATE
     Indication: HALLUCINATION
     Dosage: 17 MG, QD
     Route: 048
     Dates: start: 20170105, end: 20170107
  4. NUPLAZID [Suspect]
     Active Substance: PIMAVANSERIN TARTRATE
     Indication: INSOMNIA
  5. NUPLAZID [Suspect]
     Active Substance: PIMAVANSERIN TARTRATE
     Indication: PARKINSON^S DISEASE

REACTIONS (6)
  - Aphasia [Recovered/Resolved]
  - Deafness transitory [Recovered/Resolved]
  - Catatonia [Recovered/Resolved]
  - Memory impairment [Recovered/Resolved]
  - Off label use [Unknown]
  - Cognitive disorder [Recovered/Resolved]

NARRATIVE: CASE EVENT DATE: 201701
